FAERS Safety Report 19923273 (Version 1)
Quarter: 2021Q4

REPORT INFORMATION
  Report Type: Spontaneous
  Country: SE (occurrence: SE)
  Receive Date: 20211005
  Receipt Date: 20211005
  Transmission Date: 20220304
  Serious: Yes (Hospitalization, Other)
  Sender: FDA-Public Use
  Company Number: SE-BAYER-2021A224211

PATIENT
  Sex: Female

DRUGS (1)
  1. LEVONORGESTREL [Suspect]
     Active Substance: LEVONORGESTREL
     Route: 064

REACTIONS (5)
  - Arrhythmia neonatal [Recovering/Resolving]
  - Dyspnoea [Recovering/Resolving]
  - Thrombosis [None]
  - Lung disorder [None]
  - Foetal exposure during pregnancy [None]
